FAERS Safety Report 10880967 (Version 1)
Quarter: 2015Q1

REPORT INFORMATION
  Report Type: Spontaneous
  Country: US (occurrence: US)
  Receive Date: 20150303
  Receipt Date: 20150303
  Transmission Date: 20150721
  Serious: Yes (Other)
  Sender: FDA-Public Use
  Company Number: US-JNJCP-30000267684

PATIENT
  Age: 47 Year
  Sex: Female
  Weight: 77 kg

DRUGS (2)
  1. NEUTROGENA AGELESS INTENSIVES DEEP WRINKLE MOISTURE NIGHT [Suspect]
     Active Substance: COSMETICS
     Indication: SKIN WRINKLING
     Dosage: IN LITTLE MORE THAN A PEARL SIZED AMOUNT, EVERY OTHER DAY, ONLY TWICE ON NECK AND EVERY DAY ON FACE
     Route: 061
     Dates: start: 20150201
  2. NEUTROGENA OIL-FREE MOISTURE SPF 35 [Suspect]
     Active Substance: AVOBENZONE\HOMOSALATE\OCTISALATE\OCTOCRYLENE\OXYBENZONE
     Indication: DRY SKIN PROPHYLAXIS
     Dosage: DAILY, FOR MANY YEARS
     Route: 061

REACTIONS (5)
  - Application site erythema [Recovering/Resolving]
  - Application site pruritus [Recovering/Resolving]
  - Application site papules [Recovering/Resolving]
  - Hypersensitivity [None]
  - Application site vesicles [Recovering/Resolving]

NARRATIVE: CASE EVENT DATE: 20150201
